FAERS Safety Report 6743096-4 (Version None)
Quarter: 2010Q2

REPORT INFORMATION
  Report Type: 
  Country: None (occurrence: None)
  Receive Date: 20100527
  Receipt Date: 20100513
  Transmission Date: 20101027
  Serious: Yes (Other)
  Sender: FDA-Public Use
  Company Number: GB-MYLANLABS-2010S1008446

PATIENT
  Age: 61 Year
  Sex: Female

DRUGS (2)
  1. CLARITHROMYCIN [Suspect]
     Indication: PROPHYLAXIS
     Route: 048
     Dates: start: 20030101
  2. GLEEVEC [Interacting]
     Indication: ACUTE LYMPHOCYTIC LEUKAEMIA
     Dates: start: 20030101

REACTIONS (3)
  - CONVULSION [None]
  - DRUG INTERACTION [None]
  - TEMPORAL LOBE EPILEPSY [None]
